FAERS Safety Report 11110863 (Version 1)
Quarter: 2015Q2

REPORT INFORMATION
  Report Type: Report from Study
  Country: CZ (occurrence: CZ)
  Receive Date: 20150513
  Receipt Date: 20150513
  Transmission Date: 20150821
  Serious: Yes (Death, Other)
  Sender: FDA-Public Use
  Company Number: CZ-TAKEDA-2015TUS006331

PATIENT
  Age: 62 Year
  Sex: Male

DRUGS (1)
  1. ADENURIC [Suspect]
     Active Substance: FEBUXOSTAT
     Indication: GOUTY ARTHRITIS
     Dosage: 80 MG, QD
     Route: 065
     Dates: start: 20120424, end: 20121120

REACTIONS (2)
  - Acute myocardial infarction [Fatal]
  - Labelled drug-disease interaction medication error [Fatal]

NARRATIVE: CASE EVENT DATE: 2012
